FAERS Safety Report 10197651 (Version 1)
Quarter: 2014Q2

REPORT INFORMATION
  Report Type: Spontaneous
  Country: US (occurrence: None)
  Receive Date: 20140523
  Receipt Date: 20140523
  Transmission Date: 20141212
  Serious: Yes (Other)
  Sender: FDA-Public Use
  Company Number: None

PATIENT
  Age: 69 Year
  Sex: Female
  Weight: 81.65 kg

DRUGS (2)
  1. GLIPIZIDE [Suspect]
     Indication: TYPE 2 DIABETES MELLITUS
     Dosage: 1 TABLET, 1/2 AM 1/2 PM, MOUTH
     Route: 048
     Dates: end: 20140519
  2. METFORMIN [Concomitant]

REACTIONS (7)
  - Headache [None]
  - Visual impairment [None]
  - Myalgia [None]
  - Malaise [None]
  - Pyrexia [None]
  - Epistaxis [None]
  - Pruritus [None]
